FAERS Safety Report 16513864 (Version 1)
Quarter: 2019Q3

REPORT INFORMATION
  Report Type: Spontaneous
  Country: US (occurrence: US)
  Receive Date: 20190701
  Receipt Date: 20190701
  Transmission Date: 20191004
  Serious: No
  Sender: FDA-Public Use
  Company Number: US-ROCHE-2170849

PATIENT
  Sex: Male

DRUGS (4)
  1. KLONOPIN [Suspect]
     Active Substance: CLONAZEPAM
     Indication: ANGER
  2. KLONOPIN [Suspect]
     Active Substance: CLONAZEPAM
     Indication: MOOD ALTERED
     Dosage: AT NIGHT ;ONGOING: UNKNOWN
     Route: 065
  3. KLONOPIN [Suspect]
     Active Substance: CLONAZEPAM
     Indication: INSOMNIA
  4. LEMTRADA [Concomitant]
     Active Substance: ALEMTUZUMAB
     Dosage: UNKNOWN
     Route: 065

REACTIONS (4)
  - Drug ineffective [Unknown]
  - Anger [Unknown]
  - Insomnia [Unknown]
  - Mood altered [Unknown]
